FAERS Safety Report 5363554-7 (Version None)
Quarter: 2007Q2

REPORT INFORMATION
  Report Type: 
  Country: None (occurrence: None)
  Receive Date: 20070618
  Receipt Date: 20070618
  Transmission Date: 20071010
  Serious: No
  Sender: FDA-Public Use
  Company Number: None

PATIENT
  Sex: Female
  Weight: 61.2356 kg

DRUGS (1)
  1. PAXIL [Suspect]
     Indication: PANIC ATTACK
     Dates: start: 20061022, end: 20070617

REACTIONS (4)
  - ANXIETY [None]
  - DISSOCIATION [None]
  - DRUG DEPENDENCE [None]
  - MUSCLE TWITCHING [None]
